FAERS Safety Report 4804364-6 (Version None)
Quarter: 2005Q4

REPORT INFORMATION
  Report Type: 
  Country: None (occurrence: None)
  Receive Date: 20051017
  Receipt Date: 20051010
  Transmission Date: 20060501
  Serious: Yes (Other)
  Sender: FDA-Public Use
  Company Number: 2005139521

PATIENT
  Age: 82 Year
  Sex: Female

DRUGS (2)
  1. BEXTRA [Suspect]
     Indication: ARTHRITIS
     Dosage: 10 MG (10 MG, 1IN 1 D),
  2. TEGRETOL [Concomitant]

REACTIONS (5)
  - ANAEMIA [None]
  - LYMPHOMA [None]
  - MALAISE [None]
  - NODULE [None]
  - PERITONEAL DISORDER [None]
